APPROVED DRUG PRODUCT: REBETOL
Active Ingredient: RIBAVIRIN
Strength: 200MG **Indicated for use and comarketed with Interferon ALFA-2B, Recombinant (INTRON A), as Rebetron Combination Therapy**
Dosage Form/Route: CAPSULE;ORAL
Application: N020903 | Product #001
Applicant: MERCK SHARP AND DOHME CORP
Approved: Jun 3, 1998 | RLD: No | RS: No | Type: DISCN